FAERS Safety Report 7733827-9 (Version None)
Quarter: 2011Q3

REPORT INFORMATION
  Report Type: 
  Country: None (occurrence: None)
  Receive Date: 20110906
  Receipt Date: 20110906
  Transmission Date: 20111222
  Serious: No
  Sender: FDA-Public Use
  Company Number: None

PATIENT
  Age: 34 Year
  Sex: Female

DRUGS (1)
  1. LEVOTHYROXINE SODIUM [Suspect]
     Indication: POST PROCEDURAL HYPOTHYROIDISM
     Dates: start: 20081201, end: 20100201

REACTIONS (1)
  - BLOOD THYROID STIMULATING HORMONE ABNORMAL [None]
